FAERS Safety Report 17367847 (Version 6)
Quarter: 2020Q3

REPORT INFORMATION
  Report Type: Spontaneous
  Country: US (occurrence: US)
  Receive Date: 20200204
  Receipt Date: 20200907
  Transmission Date: 20201102
  Serious: No
  Sender: FDA-Public Use
  Company Number: US-BIOGEN-2020BI00831441

PATIENT
  Age: 52 Year
  Sex: Female

DRUGS (8)
  1. TECFIDERA [Suspect]
     Active Substance: DIMETHYL FUMARATE
     Indication: MULTIPLE SCLEROSIS
     Dosage: STARTING DOSE
     Route: 048
     Dates: start: 20200103
  2. TECFIDERA [Suspect]
     Active Substance: DIMETHYL FUMARATE
     Route: 048
     Dates: end: 20200130
  3. TECFIDERA [Suspect]
     Active Substance: DIMETHYL FUMARATE
     Route: 048
     Dates: start: 20200103, end: 20200109
  4. TECFIDERA [Suspect]
     Active Substance: DIMETHYL FUMARATE
     Route: 048
     Dates: start: 202002
  5. TECFIDERA [Suspect]
     Active Substance: DIMETHYL FUMARATE
     Route: 048
     Dates: start: 20200131, end: 20200131
  6. TECFIDERA [Suspect]
     Active Substance: DIMETHYL FUMARATE
     Route: 048
     Dates: start: 20200110
  7. MUCINEX DM [Concomitant]
     Active Substance: DEXTROMETHORPHAN HYDROBROMIDE\GUAIFENESIN
     Route: 065
  8. TECFIDERA [Suspect]
     Active Substance: DIMETHYL FUMARATE
     Route: 048
     Dates: start: 20200201

REACTIONS (16)
  - Hot flush [Recovered/Resolved with Sequelae]
  - Hypoaesthesia [Unknown]
  - White blood cell count increased [Unknown]
  - Multiple allergies [Recovered/Resolved with Sequelae]
  - Vomiting [Unknown]
  - Nasopharyngitis [Not Recovered/Not Resolved]
  - Diarrhoea [Not Recovered/Not Resolved]
  - Dyspepsia [Recovered/Resolved with Sequelae]
  - Foreign body in throat [Recovered/Resolved with Sequelae]
  - Headache [Unknown]
  - Influenza [Not Recovered/Not Resolved]
  - Multiple sclerosis [Not Recovered/Not Resolved]
  - Sinusitis [Not Recovered/Not Resolved]
  - Pruritus [Recovered/Resolved with Sequelae]
  - Decreased appetite [Unknown]
  - Flushing [Recovered/Resolved with Sequelae]

NARRATIVE: CASE EVENT DATE: 20200103
